FAERS Safety Report 6184477-X (Version None)
Quarter: 2009Q2

REPORT INFORMATION
  Report Type: 
  Country: None (occurrence: None)
  Receive Date: 20090508
  Receipt Date: 20090428
  Transmission Date: 20091009
  Serious: Yes (Hospitalization, Other)
  Sender: FDA-Public Use
  Company Number: DE-PFIZER INC-2009182754

PATIENT
  Age: 69 Year

DRUGS (2)
  1. ZOLOFT [Suspect]
     Indication: DEPRESSION
     Dosage: 50 MG/DAY
     Route: 048
     Dates: start: 20080923, end: 20081127
  2. ZOLOFT [Suspect]
     Indication: AFFECTIVE DISORDER

REACTIONS (1)
  - HEPATOTOXICITY [None]
